FAERS Safety Report 7644081-0 (Version None)
Quarter: 2011Q3

REPORT INFORMATION
  Report Type: 
  Country: None (occurrence: None)
  Receive Date: 20110729
  Receipt Date: 20110726
  Transmission Date: 20111222
  Serious: Yes (Other)
  Sender: FDA-Public Use
  Company Number: JP-SANOFI-AVENTIS-2011SA045896

PATIENT
  Age: 41 Year
  Sex: Male

DRUGS (7)
  1. EPADEL [Concomitant]
     Indication: DYSLIPIDAEMIA
     Route: 048
     Dates: start: 20110628
  2. LEVOFLOXACIN [Concomitant]
     Indication: SINUSITIS
     Route: 048
     Dates: start: 20110705, end: 20110709
  3. LIPIDIL [Concomitant]
     Indication: DYSLIPIDAEMIA
     Route: 048
     Dates: start: 20110603
  4. LEVOFLOXACIN [Concomitant]
     Indication: BRONCHITIS
     Route: 048
     Dates: start: 20110705, end: 20110709
  5. LEVOFLOXACIN [Concomitant]
     Route: 048
     Dates: start: 20110715, end: 20110715
  6. LEVOFLOXACIN [Concomitant]
     Route: 048
     Dates: start: 20110715, end: 20110715
  7. ALLEGRA [Suspect]
     Route: 048
     Dates: start: 20110715, end: 20110715

REACTIONS (1)
  - ANAPHYLACTIC SHOCK [None]
